FAERS Safety Report 6577533-5 (Version None)
Quarter: 2010Q1

REPORT INFORMATION
  Report Type: 
  Country: None (occurrence: None)
  Receive Date: 20100211
  Receipt Date: 20100115
  Transmission Date: 20100710
  Serious: Yes (Death, Hospitalization, Other)
  Sender: FDA-Public Use
  Company Number: BE-BAYER-200822640GPV

PATIENT
  Age: 65 Year
  Sex: Female
  Weight: 37 kg

DRUGS (19)
  1. CAMPATH [Suspect]
     Indication: CHRONIC LYMPHOCYTIC LEUKAEMIA
     Route: 058
     Dates: start: 20071022, end: 20080222
  2. XALATAN [Concomitant]
     Indication: GLAUCOMA
     Dates: start: 20010322
  3. CLIMEN [Concomitant]
     Indication: ALOPECIA
     Dates: start: 19950101
  4. ANDROCUR [Concomitant]
     Indication: ALOPECIA
     Dates: start: 19950101
  5. ARTEOPTIC [Concomitant]
     Indication: GLAUCOMA
     Dates: start: 20010322
  6. MINOXIDIL [Concomitant]
     Indication: ALOPECIA
     Dates: start: 19950101
  7. DEANXIT [Concomitant]
     Indication: ALOPECIA
     Dates: start: 20020101
  8. VOLTAREN [Concomitant]
     Dates: start: 20090116
  9. MORPHINE [Concomitant]
     Route: 065
  10. DAFALGAN [Concomitant]
     Dates: start: 20090224
  11. OXYCONTIN [Concomitant]
     Route: 065
  12. OXYCONTIN [Concomitant]
     Dates: start: 20090209
  13. REDOMEX [Concomitant]
     Dates: start: 20090220
  14. LAXOBERON [Concomitant]
     Dates: start: 20090218
  15. DAPSONE [Concomitant]
     Dates: start: 20090210
  16. D-CURE DRINKABLE [Concomitant]
     Dates: start: 20090203
  17. CALCIUM SANDOZ [Concomitant]
     Dates: start: 20090204
  18. TRIBVIC [Concomitant]
     Route: 065
  19. OMEPRAZOLE [Concomitant]
     Dates: start: 20090117

REACTIONS (6)
  - ARTHRALGIA [None]
  - DECREASED APPETITE [None]
  - GENERAL PHYSICAL HEALTH DETERIORATION [None]
  - HIP FRACTURE [None]
  - INFECTION [None]
  - PNEUMONIA [None]
